FAERS Safety Report 24702996 (Version 6)
Quarter: 2025Q3

REPORT INFORMATION
  Report Type: Spontaneous
  Country: US (occurrence: US)
  Receive Date: 20241205
  Receipt Date: 20250923
  Transmission Date: 20251021
  Serious: No
  Sender: BRISTOL-MYERS SQUIBB COMPANY
  Company Number: US-BRISTOL-MYERS SQUIBB COMPANY-2024-186528

PATIENT
  Age: 70 Year
  Sex: Male

DRUGS (3)
  1. LENALIDOMIDE [Suspect]
     Active Substance: LENALIDOMIDE
     Indication: Plasma cell myeloma
  2. LENALIDOMIDE [Suspect]
     Active Substance: LENALIDOMIDE
  3. LENALIDOMIDE [Suspect]
     Active Substance: LENALIDOMIDE

REACTIONS (8)
  - Nodule [Recovering/Resolving]
  - Off label use [Unknown]
  - Dyspnoea [Unknown]
  - Product administration interrupted [Unknown]
  - Oropharyngeal pain [Unknown]
  - Laboratory test abnormal [Recovering/Resolving]
  - Nasopharyngitis [Not Recovered/Not Resolved]
  - Influenza [Not Recovered/Not Resolved]
